FAERS Safety Report 9181821 (Version 1)
Quarter: 2013Q1

REPORT INFORMATION
  Report Type: Spontaneous
  Country: GB (occurrence: GB)
  Receive Date: 20130322
  Receipt Date: 20130322
  Transmission Date: 20140127
  Serious: Yes (Other)
  Sender: FDA-Public Use
  Company Number: GB-JNJFOC-2005079285

PATIENT
  Age: 52 Year
  Sex: Male

DRUGS (9)
  1. IBUPROFEN [Suspect]
     Indication: ILL-DEFINED DISORDER
     Dosage: DAILY DOSE TEXT: UNKNOWN
     Route: 065
  2. IBUPROFEN [Suspect]
     Indication: ILL-DEFINED DISORDER
     Dosage: DAILY DOSE TEXT: UNKNOWN
     Route: 065
  3. PREDNISOLONE [Suspect]
     Indication: ILL-DEFINED DISORDER
     Dosage: DAILY DOSE TEXT: UNKNOWN
     Route: 065
  4. PAROXETINE [Suspect]
     Indication: ILL-DEFINED DISORDER
     Dosage: DAILY DOSE TEXT: UNKNOWN
     Route: 065
     Dates: end: 2002
  5. PARACETAMOL [Suspect]
     Route: 065
  6. PARACETAMOL [Suspect]
     Indication: ILL-DEFINED DISORDER
     Dosage: DAILY DOSE TEXT: UNKNOWN
     Route: 065
  7. PARACETAMOL [Suspect]
     Route: 065
  8. PARACETAMOL [Suspect]
     Indication: ILL-DEFINED DISORDER
     Dosage: DAILY DOSE TEXT: UNKNOWN
     Route: 065
  9. ALCOHOL [Concomitant]
     Route: 065

REACTIONS (7)
  - Drug withdrawal syndrome [Unknown]
  - Nightmare [Unknown]
  - Suicidal ideation [Unknown]
  - Irritability [Unknown]
  - Abnormal dreams [Unknown]
  - Disturbance in attention [Unknown]
  - Overdose [Unknown]
